FAERS Safety Report 5627681-9 (Version None)
Quarter: 2008Q1

REPORT INFORMATION
  Report Type: 
  Country: None (occurrence: None)
  Receive Date: 20080215
  Receipt Date: 20080213
  Transmission Date: 20080703
  Serious: Yes (Other)
  Sender: FDA-Public Use
  Company Number: A0709262A

PATIENT
  Age: 72 Year
  Sex: Female

DRUGS (8)
  1. ALLI [Suspect]
     Dates: start: 20080205, end: 20080208
  2. VERAPAMIL [Concomitant]
  3. CARBAMAZEPINE [Concomitant]
  4. AMLODIPINE [Concomitant]
     Indication: DRUG USE FOR UNKNOWN INDICATION
  5. LIPITOR [Concomitant]
  6. DIOVAN [Concomitant]
  7. NOVOLIN 70/30 [Concomitant]
  8. SERTRALINE [Concomitant]

REACTIONS (11)
  - ABDOMINAL PAIN UPPER [None]
  - ASTHENIA [None]
  - BLOOD GLUCOSE ABNORMAL [None]
  - BLOOD POTASSIUM DECREASED [None]
  - BLOOD SODIUM DECREASED [None]
  - DEFAECATION URGENCY [None]
  - DIABETIC COMA [None]
  - DIARRHOEA [None]
  - FREQUENT BOWEL MOVEMENTS [None]
  - LOSS OF CONSCIOUSNESS [None]
  - NAUSEA [None]
